FAERS Safety Report 10598434 (Version 2)
Quarter: 2015Q1

REPORT INFORMATION
  Report Type: Spontaneous
  Country: US (occurrence: US)
  Receive Date: 20141121
  Receipt Date: 20150302
  Transmission Date: 20150720
  Serious: Yes (Hospitalization)
  Sender: FDA-Public Use
  Company Number: US-SA-2014SA158820

PATIENT
  Sex: Male

DRUGS (2)
  1. SOLOSTAR [Concomitant]
     Active Substance: DEVICE
     Dates: start: 201409
  2. LANTUS SOLOSTAR [Suspect]
     Active Substance: INSULIN GLARGINE
     Indication: DIABETES MELLITUS
     Dosage: 28 UNITS OF LANTUS AT NIGHT DOSE:28 UNIT(S)
     Route: 065
     Dates: start: 201409

REACTIONS (2)
  - Toxicity to various agents [Unknown]
  - Drug administration error [Unknown]

NARRATIVE: CASE EVENT DATE: 201409
